FAERS Safety Report 9263653 (Version 1)
Quarter: 2013Q2

REPORT INFORMATION
  Report Type: Spontaneous
  Country: US (occurrence: US)
  Receive Date: 20130430
  Receipt Date: 20130430
  Transmission Date: 20140414
  Serious: No
  Sender: FDA-Public Use
  Company Number: US-B.I. PHARMACEUTICALS,INC./RIDGEFIELD-2013-BI-10768BP

PATIENT
  Age: 65 Year
  Sex: Female
  Weight: 73 kg

DRUGS (7)
  1. SPIRIVA [Suspect]
     Indication: EMPHYSEMA
     Dosage: 18 MCG
     Route: 055
     Dates: start: 20130417
  2. SPIRIVA [Suspect]
     Route: 048
     Dates: start: 20130417, end: 20130417
  3. PAXIL [Concomitant]
     Indication: ANXIETY
     Dosage: 20 MG
     Route: 048
  4. ADVAIR [Concomitant]
     Indication: ASTHMA
     Route: 055
  5. ASPIRIN [Concomitant]
     Indication: PROPHYLAXIS
     Dosage: 81 MG
     Route: 048
  6. AREDS- LUTINE [Concomitant]
     Indication: EYE DISORDER
     Route: 048
  7. REFRESH EYE DROPS [Concomitant]
     Indication: DRY EYE

REACTIONS (1)
  - Wrong technique in drug usage process [Recovered/Resolved]
